FAERS Safety Report 4666370-4 (Version None)
Quarter: 2005Q2

REPORT INFORMATION
  Report Type: 
  Country: None (occurrence: None)
  Receive Date: 20050519
  Receipt Date: 20050510
  Transmission Date: 20051028
  Serious: Yes (Hospitalization)
  Sender: FDA-Public Use
  Company Number: GB-BRISTOL-MYERS SQUIBB COMPANY-12967949

PATIENT
  Age: 86 Year
  Sex: Female

DRUGS (5)
  1. METFORMIN HCL [Suspect]
     Indication: DIABETES MELLITUS NON-INSULIN-DEPENDENT
     Route: 048
     Dates: start: 20050417
  2. GLICLAZIDE [Concomitant]
     Route: 048
  3. CO-CODAMOL [Concomitant]
     Route: 048
  4. CALCEOS [Concomitant]
     Route: 048
  5. CIMETIDINE [Concomitant]
     Route: 048

REACTIONS (7)
  - ABDOMINAL PAIN [None]
  - DEHYDRATION [None]
  - DIARRHOEA [None]
  - NAUSEA [None]
  - POLLAKIURIA [None]
  - URINARY TRACT INFECTION [None]
  - VOMITING [None]
